FAERS Safety Report 21176657 (Version 2)
Quarter: 2022Q3

REPORT INFORMATION
  Report Type: Report from Study
  Country: US (occurrence: US)
  Receive Date: 20220805
  Receipt Date: 20220907
  Transmission Date: 20221027
  Serious: Yes (Other)
  Sender: FDA-Public Use
  Company Number: US-CELGENE-USA-20220207977

PATIENT
  Age: 63 Year
  Sex: Male
  Weight: 87.54 kg

DRUGS (4)
  1. POMALYST [Suspect]
     Active Substance: POMALIDOMIDE
     Indication: Plasma cell myeloma
     Dosage: 4 MILLIGRAM
     Route: 048
     Dates: start: 202111
  2. POMALYST [Suspect]
     Active Substance: POMALIDOMIDE
     Indication: Illness
     Dosage: 3 MILLIGRAM
     Route: 048
     Dates: start: 202112
  3. POMALYST [Suspect]
     Active Substance: POMALIDOMIDE
     Dosage: 2 MILLIGRAM
     Route: 048
     Dates: start: 202201
  4. POMALYST [Suspect]
     Active Substance: POMALIDOMIDE
     Dosage: TAKE 1 CAPSULE DAILY FOR 7 DAYS ON,7 DAYS OFF,7 DAYS ON,7 DAYS OFF,REPEAT EVERY 4 WEEKS.
     Route: 048
     Dates: start: 202111

REACTIONS (8)
  - Abscess [Unknown]
  - Immune system disorder [Unknown]
  - Somnolence [Unknown]
  - Asthenia [Unknown]
  - Fatigue [Unknown]
  - Illness [Unknown]
  - Rash [Unknown]
  - Off label use [Unknown]
